FAERS Safety Report 8514329-9 (Version None)
Quarter: 2012Q3

REPORT INFORMATION
  Report Type: 
  Country: None (occurrence: None)
  Receive Date: 20120717
  Receipt Date: 20120707
  Transmission Date: 20120928
  Serious: Yes (Other)
  Sender: FDA-Public Use
  Company Number: DE-JNJFOC-20120703482

PATIENT
  Sex: Male
  Weight: 84 kg

DRUGS (1)
  1. HALDOL [Suspect]
     Indication: EUPHORIC MOOD
     Route: 048
     Dates: start: 20120706, end: 20120707

REACTIONS (4)
  - OPHTHALMOPLEGIA [None]
  - INTENTIONAL DRUG MISUSE [None]
  - OVERDOSE [None]
  - EXTRAPYRAMIDAL DISORDER [None]
